FAERS Safety Report 7542625-0 (Version None)
Quarter: 2011Q2

REPORT INFORMATION
  Report Type: 
  Country: None (occurrence: None)
  Receive Date: 20110613
  Receipt Date: 20110603
  Transmission Date: 20111010
  Serious: Yes (Hospitalization, Other)
  Sender: FDA-Public Use
  Company Number: PHHY2011NL49615

PATIENT
  Age: 93 Year
  Sex: Female

DRUGS (1)
  1. RISPERIDONE [Suspect]
     Dosage: 25 ML, UNK
     Route: 048

REACTIONS (9)
  - DYSPHAGIA [None]
  - SOMNOLENCE [None]
  - OVERDOSE [None]
  - HYPERNATRAEMIA [None]
  - HYPOKALAEMIA [None]
  - EATING DISORDER [None]
  - PNEUMONIA ASPIRATION [None]
  - PYREXIA [None]
  - DYSPNOEA [None]
